FAERS Safety Report 9422689 (Version 2)
Quarter: 2013Q3

REPORT INFORMATION
  Report Type: Spontaneous
  Country: US (occurrence: None)
  Receive Date: 20130724
  Receipt Date: 20130912
  Transmission Date: 20140515
  Serious: Yes (Other)
  Sender: FDA-Public Use
  Company Number: 3011632-2013-00001

PATIENT
  Sex: 0

DRUGS (2)
  1. PH7 [Suspect]
     Indication: DENTAL CARIES
     Route: 002
     Dates: start: 20130601
  2. PH7 [Suspect]
     Indication: PROPHYLAXIS
     Route: 002
     Dates: start: 20130601

REACTIONS (1)
  - Nausea [None]
